FAERS Safety Report 10512927 (Version 1)
Quarter: 2014Q4

REPORT INFORMATION
  Report Type: Report from Study
  Country: NL (occurrence: NL)
  Receive Date: 20141013
  Receipt Date: 20141013
  Transmission Date: 20150528
  Serious: Yes (Life-Threatening, Hospitalization)
  Sender: FDA-Public Use
  Company Number: NL-ROCHE-1471384

PATIENT
  Age: 72 Year
  Sex: Male

DRUGS (3)
  1. EPIRUBICIN [Suspect]
     Active Substance: EPIRUBICIN
     Indication: GASTRIC CANCER
     Dosage: LAST DOSE PRIOR TO SAE: 24/SEP/2014, CUMULATIVE DOSE: 170 MG
     Route: 042
     Dates: start: 20140905
  2. CAPECITABINE. [Suspect]
     Active Substance: CAPECITABINE
     Indication: GASTRIC CANCER
     Dosage: LAST DOSE PRIOR TO SAE: 30/SEP/2014, CUMULATIVE DOSE: 45 MG, FREQUENCY: BID FOR 3 WEEKS
     Route: 048
     Dates: start: 20140905
  3. OXALIPLATIN. [Suspect]
     Active Substance: OXALIPLATIN
     Indication: GASTRIC CANCER
     Dosage: LAST DOSE PRIOR TO SAE: 24/SEP/2014, CUMULATIVE DOSE: 440 MG
     Route: 042
     Dates: start: 20140905

REACTIONS (3)
  - Thrombosis mesenteric vessel [Recovering/Resolving]
  - Mesenteric vein thrombosis [Recovering/Resolving]
  - Intestinal ischaemia [Recovering/Resolving]

NARRATIVE: CASE EVENT DATE: 20141001
